FAERS Safety Report 21601980 (Version 1)
Quarter: 2022Q4

REPORT INFORMATION
  Report Type: Spontaneous
  Country: CN (occurrence: CN)
  Receive Date: 20221116
  Receipt Date: 20221116
  Transmission Date: 20230112
  Serious: Yes (Hospitalization, Other)
  Sender: FDA-Public Use
  Company Number: CN-GLAXOSMITHKLINE-CN2022APC163742

PATIENT

DRUGS (2)
  1. ALBUTEROL SULFATE [Suspect]
     Active Substance: ALBUTEROL SULFATE
     Indication: Chronic obstructive pulmonary disease
     Dosage: 100 UG, QD
     Route: 055
     Dates: start: 20221106, end: 20221107
  2. GLYCOPYRROLATE\INDACATEROL MALEATE [Suspect]
     Active Substance: GLYCOPYRROLATE\INDACATEROL MALEATE
     Indication: Chronic obstructive pulmonary disease
     Dosage: 1 DF, QD (10UG/50UG/CAPSULE))
     Route: 055
     Dates: start: 20221106, end: 20221107

REACTIONS (8)
  - Palpitations [Recovering/Resolving]
  - Atrial fibrillation [Recovering/Resolving]
  - Ventricular tachycardia [Recovering/Resolving]
  - Discomfort [Recovering/Resolving]
  - Symptom recurrence [Recovering/Resolving]
  - Bundle branch block left [Recovering/Resolving]
  - Heart rate irregular [Recovering/Resolving]
  - Blood pressure increased [Recovering/Resolving]

NARRATIVE: CASE EVENT DATE: 20221106
